FAERS Safety Report 6915460-1 (Version None)
Quarter: 2010Q3

REPORT INFORMATION
  Report Type: 
  Country: None (occurrence: None)
  Receive Date: 20100809
  Receipt Date: 20100722
  Transmission Date: 20110219
  Serious: No
  Sender: FDA-Public Use
  Company Number: US-ABBOTT-10P-163-0654572-00

PATIENT
  Age: 43 Year

DRUGS (2)
  1. DEPAKOTE ER [Suspect]
     Indication: EPILEPSY
     Dosage: STARTED ON 1000 MG DECREASING  25 MG WEEKLY
     Dates: start: 20100501
  2. DILANTIN [Concomitant]
     Indication: EPILEPSY

REACTIONS (5)
  - ENERGY INCREASED [None]
  - MANIA [None]
  - RESTLESSNESS [None]
  - SPEECH DISORDER [None]
  - SUICIDAL IDEATION [None]
